FAERS Safety Report 23224261 (Version 1)
Quarter: 2023Q4

REPORT INFORMATION
  Report Type: Spontaneous
  Country: US (occurrence: US)
  Receive Date: 20231124
  Receipt Date: 20231124
  Transmission Date: 20240110
  Serious: Yes (Hospitalization, Other)
  Sender: FDA-Public Use
  Company Number: US-AMGEN-USASP2023207444

PATIENT
  Age: 12 Year
  Sex: Female

DRUGS (2)
  1. NEUPOGEN [Suspect]
     Active Substance: FILGRASTIM
     Indication: Combined immunodeficiency
     Dosage: 1.78 MICROGRAM/KILOGRAM, QD
     Route: 065
  2. PLERIXAFOR [Suspect]
     Active Substance: PLERIXAFOR
     Indication: Combined immunodeficiency
     Dosage: UNK
     Route: 065

REACTIONS (2)
  - Staphylococcal abscess [Unknown]
  - Treatment failure [Unknown]
